FAERS Safety Report 6404307-8 (Version None)
Quarter: 2009Q4

REPORT INFORMATION
  Report Type: 
  Country: None (occurrence: None)
  Receive Date: 20091016
  Receipt Date: 20091006
  Transmission Date: 20100525
  Serious: Yes (Other)
  Sender: FDA-Public Use
  Company Number: B0598046A

PATIENT
  Age: 35 Year
  Sex: Female

DRUGS (2)
  1. SERETIDE [Suspect]
     Route: 055
  2. RITONAVIR [Suspect]
     Route: 048

REACTIONS (3)
  - ADRENAL INSUFFICIENCY [None]
  - CUSHING'S SYNDROME [None]
  - DRUG INTERACTION [None]
